FAERS Safety Report 7948421 (Version 8)
Quarter: 2012Q4

REPORT INFORMATION
  Report Type: Report from Study
  Country: ES (occurrence: ES)
  Receive Date: 20110517
  Receipt Date: 20121220
  Transmission Date: 20130627
  Serious: Yes (Life-Threatening, Hospitalization, Other)
  Sender: FDA-Public Use
  Company Number: ES-ABBOTT-11P-144-0725636-00

PATIENT
  Age: 34 Year
  Sex: Male
  Weight: 65 kg

DRUGS (2)
  1. HUMIRA [Suspect]
     Indication: CROHN^S DISEASE
     Route: 058
     Dates: start: 20090914, end: 20110426
  2. MESALAMINE [Concomitant]
     Indication: CROHN^S DISEASE
     Dates: start: 200403

REACTIONS (2)
  - Acute myocardial infarction [Recovered/Resolved]
  - Ventricular fibrillation [Recovered/Resolved]
